FAERS Safety Report 7470434-X (Version None)
Quarter: 2011Q2

REPORT INFORMATION
  Report Type: 
  Country: None (occurrence: None)
  Receive Date: 20110510
  Receipt Date: 20110407
  Transmission Date: 20111010
  Serious: No
  Sender: FDA-Public Use
  Company Number: US-BAYER-2011-031206

PATIENT
  Age: 58 Year
  Sex: Male
  Weight: 104 kg

DRUGS (1)
  1. ALEVE (CAPLET) [Suspect]
     Indication: ARTHRITIS
     Dosage: 2 DF, BID
     Route: 048

REACTIONS (2)
  - FAECES DISCOLOURED [None]
  - FAECES HARD [None]
